FAERS Safety Report 4642916-7 (Version None)
Quarter: 2005Q2

REPORT INFORMATION
  Report Type: 
  Country: None (occurrence: None)
  Receive Date: 20050421
  Receipt Date: 20050411
  Transmission Date: 20051028
  Serious: Yes (Hospitalization)
  Sender: FDA-Public Use
  Company Number: 10803

PATIENT
  Age: 68 Year
  Sex: Male

DRUGS (4)
  1. AMIODARONE HCL [Suspect]
     Indication: ATRIAL FLUTTER
     Dosage: 200 MG TID/200 MG BID/200 MG
  2. FUROSEMIDE [Concomitant]
  3. LISINOPRIL [Concomitant]
  4. BISOPROLOL FUMARATE [Concomitant]

REACTIONS (8)
  - ATRIAL FLUTTER [None]
  - ATRIOVENTRICULAR BLOCK [None]
  - CARDIOMEGALY [None]
  - MITRAL VALVE INCOMPETENCE [None]
  - PNEUMONITIS [None]
  - PULMONARY OEDEMA [None]
  - PULMONARY TOXICITY [None]
  - THERAPY NON-RESPONDER [None]
